FAERS Safety Report 10188156 (Version 3)
Quarter: 2014Q3

REPORT INFORMATION
  Report Type: Spontaneous
  Country: GB (occurrence: GB)
  Receive Date: 20140522
  Receipt Date: 20140904
  Transmission Date: 20150326
  Serious: Yes (Death, Other)
  Sender: FDA-Public Use
  Company Number: GB-TEVA-481322ISR

PATIENT
  Age: 82 Year
  Sex: Female
  Weight: 59.4 kg

DRUGS (8)
  1. IBUPROFEN. [Suspect]
     Active Substance: IBUPROFEN
     Indication: PAIN
     Dosage: 1200 MILLIGRAM DAILY; 400MG THREE TIMES DAILY WHEN REQUIRED
     Route: 048
     Dates: start: 20130307, end: 20140414
  2. SALBUTAMOL [Concomitant]
     Active Substance: ALBUTEROL
  3. BENDROFLUMETHIAZIDE [Concomitant]
     Active Substance: BENDROFLUMETHIAZIDE
  4. FLUOXETINE [Concomitant]
     Active Substance: FLUOXETINE\FLUOXETINE HYDROCHLORIDE
  5. SIMVASTATIN. [Concomitant]
     Active Substance: SIMVASTATIN
  6. CODEINE [Concomitant]
     Active Substance: CODEINE
  7. PREDNISOLONE. [Suspect]
     Active Substance: PREDNISOLONE
     Indication: CHRONIC OBSTRUCTIVE PULMONARY DISEASE
     Dosage: 30 MILLIGRAM DAILY; INDICATION: - COPD AS PART OF SELF MANAGEMENT PLAN
     Route: 048
     Dates: start: 20140407, end: 20140414
  8. AMLODIPINE [Concomitant]
     Active Substance: AMLODIPINE BESYLATE

REACTIONS (2)
  - Sepsis [Fatal]
  - Duodenal ulcer repair [Not Recovered/Not Resolved]

NARRATIVE: CASE EVENT DATE: 20140413
